FAERS Safety Report 17703128 (Version 1)
Quarter: 2020Q2

REPORT INFORMATION
  Report Type: Report from Study
  Country: CA (occurrence: CA)
  Receive Date: 20200424
  Receipt Date: 20200424
  Transmission Date: 20200714
  Serious: Yes (Death)
  Sender: FDA-Public Use
  Company Number: CA-ASTRAZENECA-2020SE53983

PATIENT
  Sex: Male

DRUGS (13)
  1. DILTIAZEM. [Concomitant]
     Active Substance: DILTIAZEM
  2. FASENRA [Suspect]
     Active Substance: BENRALIZUMAB
     Indication: ASTHMA
     Dosage: 30.0MG UNKNOWN
     Route: 058
     Dates: start: 20190122
  3. CALCIUM [Concomitant]
     Active Substance: CALCIUM
  4. ACTONEL [Concomitant]
     Active Substance: RISEDRONATE SODIUM
  5. SYMBICORT [Concomitant]
     Active Substance: BUDESONIDE\FORMOTEROL FUMARATE DIHYDRATE
  6. PREDNISONE. [Concomitant]
     Active Substance: PREDNISONE
  7. XOLAIR [Concomitant]
     Active Substance: OMALIZUMAB
     Dates: end: 20180830
  8. RAMIPRIL. [Concomitant]
     Active Substance: RAMIPRIL
  9. VITAMIN D [Concomitant]
     Active Substance: VITAMIN D NOS
  10. ALVESCO [Concomitant]
     Active Substance: CICLESONIDE
  11. LUMIGAN [Concomitant]
     Active Substance: BIMATOPROST
  12. TECTA [Concomitant]
     Active Substance: PANTOPRAZOLE MAGNESIUM
  13. LIPITOR [Concomitant]
     Active Substance: ATORVASTATIN CALCIUM

REACTIONS (1)
  - Death [Fatal]
